FAERS Safety Report 18773807 (Version 1)
Quarter: 2021Q1

REPORT INFORMATION
  Report Type: Spontaneous
  Country: US (occurrence: US)
  Receive Date: 20210122
  Receipt Date: 20210122
  Transmission Date: 20210419
  Serious: Yes (Hospitalization)
  Sender: FDA-Public Use
  Company Number: None

PATIENT
  Age: 51 Year
  Sex: Male
  Weight: 136 kg

DRUGS (13)
  1. BAMLANIVIMAB. [Suspect]
     Active Substance: BAMLANIVIMAB
     Indication: COVID-19
     Dosage: ?          OTHER FREQUENCY:ONCE;?
     Route: 041
     Dates: start: 20210120, end: 20210120
  2. METFORMIN [Concomitant]
     Active Substance: METFORMIN HYDROCHLORIDE
     Dates: start: 20201223
  3. BENZONATATE. [Concomitant]
     Active Substance: BENZONATATE
     Dates: start: 20210118
  4. CHLORTHALIDONE. [Concomitant]
     Active Substance: CHLORTHALIDONE
     Dates: start: 20201201
  5. SILDENAFIL. [Concomitant]
     Active Substance: SILDENAFIL
     Dates: start: 20201203
  6. NPH INSULIN [Concomitant]
     Active Substance: INSULIN BEEF
  7. ACETAMINOPHEN. [Concomitant]
     Active Substance: ACETAMINOPHEN
     Dates: start: 20210118
  8. ONDANSETRON [Concomitant]
     Active Substance: ONDANSETRON
     Dates: start: 20210118
  9. ALBUTEROL 90 MCG [Concomitant]
     Active Substance: ALBUTEROL
     Dates: start: 20210118
  10. EMPAGLIFLOZIN [Concomitant]
     Active Substance: EMPAGLIFLOZIN
     Dates: start: 20200920
  11. NAPROXEN. [Concomitant]
     Active Substance: NAPROXEN
     Dates: start: 20201223
  12. DOXYCYCLINE. [Concomitant]
     Active Substance: DOXYCYCLINE
     Dates: start: 20210118
  13. LOSARTAN. [Concomitant]
     Active Substance: LOSARTAN
     Dates: start: 20200813

REACTIONS (4)
  - Pyrexia [None]
  - Vomiting [None]
  - Oxygen saturation decreased [None]
  - Dyspnoea [None]

NARRATIVE: CASE EVENT DATE: 20210121
